FAERS Safety Report 15777375 (Version 1)
Quarter: 2018Q4

REPORT INFORMATION
  Report Type: Spontaneous
  Country: US (occurrence: US)
  Receive Date: 20181226
  Receipt Date: 20181226
  Transmission Date: 20190205
  Serious: No
  Sender: FDA-Public Use
  Company Number: None

PATIENT

DRUGS (1)
  1. HUMIRA [Suspect]
     Active Substance: ADALIMUMAB
     Indication: MYOPATHY
     Dosage: EVERY TEN TO 10-12 HOURS
     Route: 058
     Dates: start: 20160326

REACTIONS (2)
  - Migraine [None]
  - Drug ineffective [None]
